FAERS Safety Report 7889904-5 (Version None)
Quarter: 2011Q4

REPORT INFORMATION
  Report Type: 
  Country: None (occurrence: None)
  Receive Date: 20111103
  Receipt Date: 20111021
  Transmission Date: 20120403
  Serious: Yes (Hospitalization)
  Sender: FDA-Public Use
  Company Number: US-ELI_LILLY_AND_COMPANY-US201109008283

PATIENT
  Sex: Female

DRUGS (5)
  1. ADDERALL 5 [Concomitant]
  2. HUMATROPE [Suspect]
     Dosage: 0.4 MG, QD
     Dates: start: 20110101
  3. WARFARIN SODIUM [Concomitant]
  4. METFORMIN HCL [Concomitant]
  5. PRILOSEC [Concomitant]

REACTIONS (5)
  - LARGE INTESTINE PERFORATION [None]
  - HERNIA [None]
  - GASTROINTESTINAL DISORDER [None]
  - PAIN [None]
  - MALAISE [None]
